FAERS Safety Report 6207377-5 (Version None)
Quarter: 2009Q2

REPORT INFORMATION
  Report Type: 
  Country: None (occurrence: None)
  Receive Date: 20090528
  Receipt Date: 20090528
  Transmission Date: 20091009
  Serious: Yes (Hospitalization, Other)
  Sender: FDA-Public Use
  Company Number: US-PFIZER INC-2009196160

PATIENT
  Sex: Female
  Weight: 54.422 kg

DRUGS (13)
  1. NEURONTIN [Suspect]
     Indication: NEUROPATHY PERIPHERAL
     Dosage: UNK
  2. NEURONTIN [Suspect]
     Indication: MULTIPLE SCLEROSIS
  3. LYRICA [Suspect]
     Dosage: UNK
  4. GABAPENTIN [Suspect]
     Indication: NEUROPATHY PERIPHERAL
     Dates: end: 20090406
  5. GABAPENTIN [Suspect]
     Indication: MULTIPLE SCLEROSIS
  6. OXYBUTIN [Concomitant]
     Dosage: UNK
  7. TEMAZEPAM [Concomitant]
     Dosage: UNK
  8. LEXAPRO [Concomitant]
     Dosage: UNK
  9. PROVIGIL [Concomitant]
     Dosage: UNK
  10. TIZANIDINE [Concomitant]
     Dosage: UNK
  11. REBIF [Concomitant]
     Dosage: UNK
  12. SUDAFED 12 HOUR [Concomitant]
     Dosage: UNK
  13. ALL OTHER THERAPEUTIC PRODUCTS [Concomitant]
     Dosage: UNK

REACTIONS (7)
  - BLINDNESS [None]
  - CYSTITIS [None]
  - DEAFNESS [None]
  - DRUG INEFFECTIVE [None]
  - DYSPHAGIA [None]
  - GAIT DISTURBANCE [None]
  - MULTIPLE SCLEROSIS [None]
